FAERS Safety Report 10538826 (Version 2)
Quarter: 2015Q4

REPORT INFORMATION
  Report Type: Report from Study
  Country: ZA (occurrence: ZA)
  Receive Date: 20141023
  Receipt Date: 20151015
  Transmission Date: 20160304
  Serious: Yes (Hospitalization)
  Sender: FDA-Public Use
  Company Number: PHHY2014ZA138641

PATIENT
  Sex: Male

DRUGS (3)
  1. ACLASTA [Suspect]
     Active Substance: ZOLEDRONIC ACID
     Indication: OSTEOPOROSIS
     Dosage: 1 DF, Q12MO (5ML/100G)
     Route: 042
     Dates: start: 2011
  2. ACLASTA [Suspect]
     Active Substance: ZOLEDRONIC ACID
     Dosage: 1 DF, Q12MO (5ML/100G)
     Route: 042
     Dates: start: 2012
  3. ACLASTA [Suspect]
     Active Substance: ZOLEDRONIC ACID
     Dosage: 1 DF, Q12MO (5ML/100G)
     Route: 042
     Dates: start: 2013

REACTIONS (1)
  - Heart rate decreased [Unknown]
